FAERS Safety Report 5598384-4 (Version None)
Quarter: 2008Q1

REPORT INFORMATION
  Report Type: 
  Country: None (occurrence: None)
  Receive Date: 20080122
  Receipt Date: 20080109
  Transmission Date: 20080703
  Serious: Yes (Hospitalization)
  Sender: FDA-Public Use
  Company Number: SK-AMGEN-UK260062

PATIENT
  Sex: Male

DRUGS (2)
  1. PANITUMUMAB [Suspect]
     Indication: COLORECTAL CANCER
     Route: 042
     Dates: start: 20070502
  2. IRINOTECAN [Suspect]
     Route: 065

REACTIONS (2)
  - DEHYDRATION [None]
  - DIARRHOEA [None]
